FAERS Safety Report 9191036 (Version 2)
Quarter: 2013Q3

REPORT INFORMATION
  Report Type: Spontaneous
  Country: BR (occurrence: BR)
  Receive Date: 20130326
  Receipt Date: 20130710
  Transmission Date: 20140515
  Serious: Yes (Hospitalization, Disabling)
  Sender: FDA-Public Use
  Company Number: BR-ASTRAZENECA-2013SE19024

PATIENT
  Age: 838 Month
  Sex: Female
  Weight: 60 kg

DRUGS (8)
  1. ATACAND COMB [Suspect]
     Indication: HYPERTENSION
     Dosage: 16/2.5 MG EVERY 12 HOURS
     Route: 048
     Dates: start: 201211
  2. SELOZOK [Suspect]
     Indication: HYPERTENSION
     Dosage: EVERY 12 HOURS
     Route: 048
     Dates: start: 201211
  3. SEROQUEL [Suspect]
     Indication: RESTLESSNESS
     Dosage: EVERY DAY
     Route: 048
     Dates: start: 201301
  4. SEROQUEL [Suspect]
     Indication: RESTLESSNESS
     Dosage: EVERY DAY
     Route: 048
     Dates: start: 201301
  5. OMEPRAZOLE [Suspect]
     Indication: GASTRITIS PROPHYLAXIS
     Dosage: EVERY DAY
  6. SIMVASTATIN [Concomitant]
     Indication: BLOOD CHOLESTEROL INCREASED
     Dosage: EVERY DAY
     Dates: start: 201211
  7. ATENSINA [Concomitant]
  8. LEXOTAN [Concomitant]

REACTIONS (5)
  - Ischaemic stroke [Recovered/Resolved with Sequelae]
  - Blindness [Not Recovered/Not Resolved]
  - Restlessness [Recovering/Resolving]
  - Off label use [Not Recovered/Not Resolved]
  - Off label use [Not Recovered/Not Resolved]
